FAERS Safety Report 17287901 (Version 1)
Quarter: 2020Q1

REPORT INFORMATION
  Report Type: Spontaneous
  Country: GB (occurrence: GB)
  Receive Date: 20200120
  Receipt Date: 20200120
  Transmission Date: 20200409
  Serious: Yes (Other)
  Sender: FDA-Public Use
  Company Number: GB-TEVA-2020-GB-1169645

PATIENT
  Age: 31 Year
  Sex: Male
  Weight: 143 kg

DRUGS (5)
  1. NEBIDO [Concomitant]
     Active Substance: TESTOSTERONE UNDECANOATE
  2. AMOXICILLIN. [Suspect]
     Active Substance: AMOXICILLIN
     Indication: EAR INFECTION
     Dosage: 500 MG
     Route: 048
     Dates: start: 20191217, end: 20191217
  3. VENTOLIN [Concomitant]
     Active Substance: ALBUTEROL SULFATE
  4. CABERGOLINE. [Concomitant]
     Active Substance: CABERGOLINE
  5. LEVOTHYROXINE. [Concomitant]
     Active Substance: LEVOTHYROXINE

REACTIONS (4)
  - Pyrexia [Recovered/Resolved]
  - Paraesthesia [Recovered/Resolved]
  - Diarrhoea [Recovered/Resolved]
  - Vertigo [Recovered/Resolved]

NARRATIVE: CASE EVENT DATE: 20191217
